FAERS Safety Report 9697975 (Version 1)
Quarter: 2013Q4

REPORT INFORMATION
  Report Type: Spontaneous
  Country: None (occurrence: None)
  Receive Date: 20131118
  Receipt Date: 20131118
  Transmission Date: 20140711
  Serious: Yes (Life-Threatening, Hospitalization)
  Sender: FDA-Public Use
  Company Number: DAV-AE-AMP-13-02

PATIENT
  Age: 27 Year
  Sex: Male

DRUGS (1)
  1. AMPICILLIN [Suspect]
     Indication: ACUTE TONSILLITIS

REACTIONS (1)
  - Drug reaction with eosinophilia and systemic symptoms [None]
